FAERS Safety Report 4359330-4 (Version None)
Quarter: 2004Q2

REPORT INFORMATION
  Report Type: 
  Country: None (occurrence: None)
  Receive Date: 20040512
  Receipt Date: 20040428
  Transmission Date: 20050107
  Serious: Yes (Hospitalization)
  Sender: FDA-Public Use
  Company Number: D01200401466

PATIENT
  Age: 71 Year
  Sex: Male
  Weight: 73 kg

DRUGS (11)
  1. CISPLATIN [Suspect]
     Indication: SMALL CELL LUNG CANCER EXTENSIVE STAGE
     Dosage: 80 MG/M2 CONT - INTRAVENOUS NOS
     Route: 042
     Dates: start: 20040311, end: 20040311
  2. ETOPOSIDE [Suspect]
     Indication: SMALL CELL LUNG CANCER EXTENSIVE STAGE
     Dosage: 120 MG/M2 GIVEN ON DAYS 1, 2 AND 3, IN A 30-MINUTE INFUSION - INTRAVENOUS NOS
     Route: 042
     Dates: start: 20040311, end: 20040311
  3. METOCLOPRAMIDE [Concomitant]
  4. DEXAMETHASONE [Concomitant]
  5. GRANISETRON [Concomitant]
  6. OMEPRAZOLE [Concomitant]
  7. METHYLPREDNISOLONE [Concomitant]
  8. TRAMADOL HCL [Concomitant]
  9. ALBUTEROL SULFATE [Concomitant]
  10. IPRATROPIUM BROMIDE [Concomitant]
  11. ONDANSETRON HCL [Concomitant]

REACTIONS (8)
  - ANAEMIA [None]
  - ATRIAL FIBRILLATION [None]
  - CARDIAC FAILURE CONGESTIVE [None]
  - CONFUSIONAL STATE [None]
  - ESCHERICHIA INFECTION [None]
  - NEUTROPENIA [None]
  - SEPTIC SHOCK [None]
  - STREPTOCOCCAL INFECTION [None]
